FAERS Safety Report 9052594 (Version 2)
Quarter: 2013Q1

REPORT INFORMATION
  Report Type: Spontaneous
  Country: GB (occurrence: GB)
  Receive Date: 20130207
  Receipt Date: 20130312
  Transmission Date: 20140127
  Serious: Yes (Life-Threatening, Hospitalization, Disabling, Other)
  Sender: FDA-Public Use
  Company Number: GB-ABBOTT-13P-167-1042365-00

PATIENT
  Age: 57 Year
  Sex: Female
  Weight: 91 kg

DRUGS (4)
  1. CLARITHROMYCIN [Suspect]
     Indication: ACUTE SINUSITIS
     Dosage: 2 TWICE A DAY TO START COURSE THEN 1 A DAY
     Route: 048
     Dates: start: 20101001
  2. CLARITHROMYCIN [Suspect]
     Dosage: 20
     Route: 048
     Dates: start: 20120902, end: 20130101
  3. AMITRIPTYLINE [Concomitant]
     Indication: SLEEP DISORDER
     Dosage: 3 AD AT NIGHT
  4. CIPROFLOXACIN [Concomitant]
     Indication: PRODUCT USED FOR UNKNOWN INDICATION

REACTIONS (4)
  - Arthralgia [Recovered/Resolved]
  - Herpes zoster [Not Recovered/Not Resolved]
  - Cerebrovascular accident [Not Recovered/Not Resolved]
  - Type 2 diabetes mellitus [Not Recovered/Not Resolved]
